FAERS Safety Report 15503036 (Version 1)
Quarter: 2018Q4

REPORT INFORMATION
  Report Type: Spontaneous
  Country: US (occurrence: US)
  Receive Date: 20181008
  Receipt Date: 20181008
  Transmission Date: 20190205
  Serious: No
  Sender: FDA-Public Use
  Company Number: None

PATIENT
  Age: 47 Year
  Sex: Female
  Weight: 90 kg

DRUGS (5)
  1. MAGNESIUM [Concomitant]
     Active Substance: MAGNESIUM
  2. MELOXICAM. [Concomitant]
     Active Substance: MELOXICAM
  3. PLANT BASED IRON [Concomitant]
  4. DEPO-PROVERA [Suspect]
     Active Substance: MEDROXYPROGESTERONE ACETATE
     Indication: CONTRACEPTION
     Dosage: ?          QUANTITY:1 INJECTION;OTHER FREQUENCY:ONCE EVERY 3 MONTH;?
     Route: 030
  5. CALCIUM [Concomitant]
     Active Substance: CALCIUM

REACTIONS (7)
  - Fatigue [None]
  - Metrorrhagia [None]
  - Heart rate increased [None]
  - Hypertension [None]
  - Therapy cessation [None]
  - Loss of libido [None]
  - Nausea [None]

NARRATIVE: CASE EVENT DATE: 20180824
